FAERS Safety Report 6183365-2 (Version None)
Quarter: 2009Q2

REPORT INFORMATION
  Report Type: 
  Country: None (occurrence: None)
  Receive Date: 20090506
  Receipt Date: 20090430
  Transmission Date: 20091009
  Serious: Yes (Death, Other)
  Sender: FDA-Public Use
  Company Number: 2009US001348

PATIENT
  Age: 35 Year
  Sex: Male

DRUGS (5)
  1. PROGRAF [Suspect]
     Indication: RENAL AND PANCREAS TRANSPLANT
     Dosage: 0.15 MG/KG;
  2. MYCOPHENOLATE MOFETIL [Suspect]
     Indication: RENAL AND PANCREAS TRANSPLANT
     Dosage: 144 G. UID/QD;
  3. METHYLPREDNISOLONE [Suspect]
     Indication: RENAL AND PANCREAS TRANSPLANT
     Dosage: 500 MG, UID/QD; 250 MG, UID, QD, 125 MG, UID/QD;
  4. PREDNISONE TAB [Suspect]
     Indication: RENAL AND PANCREAS TRANSPLANT
     Dosage: 1 MG, UID/QD;
  5. THYMOGOBULIN (ANTITHYMOCYTE IMMUNOGLOBULIN) [Concomitant]

REACTIONS (10)
  - CANDIDIASIS [None]
  - CATHETER RELATED INFECTION [None]
  - COMPLICATIONS OF TRANSPLANTED PANCREAS [None]
  - CYTOMEGALOVIRUS INFECTION [None]
  - ENTEROCOCCAL BACTERAEMIA [None]
  - GRAFT INFECTION [None]
  - INTESTINAL FISTULA [None]
  - LUNG INFECTION [None]
  - SEPTIC SHOCK [None]
  - WOUND INFECTION BACTERIAL [None]
